FAERS Safety Report 8131157-7 (Version None)
Quarter: 2012Q1

REPORT INFORMATION
  Report Type: 
  Country: None (occurrence: None)
  Receive Date: 20120213
  Receipt Date: 20120201
  Transmission Date: 20120608
  Serious: No
  Sender: FDA-Public Use
  Company Number: JP-VERTEX PHARMACEUTICALS INC.-AE-2012-001593

PATIENT
  Age: 70 Year
  Sex: Male

DRUGS (6)
  1. RIBAVIRIN [Concomitant]
     Indication: HEPATITIS C
     Route: 048
     Dates: start: 20120123, end: 20120127
  2. PEGINTERFERON ALFA-2B [Concomitant]
     Indication: HEPATITIS C
     Route: 051
     Dates: start: 20120123
  3. AMLODIPINE [Concomitant]
     Route: 048
  4. TELAVIC (TELAPREVIR) [Suspect]
     Indication: HEPATITIS C
     Route: 048
     Dates: start: 20120123, end: 20120126
  5. SITAGLIPTIN PHOSPHATE [Concomitant]
     Route: 048
  6. HYALEIN [Concomitant]
     Route: 047

REACTIONS (2)
  - DRUG ERUPTION [None]
  - BLOOD CREATININE INCREASED [None]
